FAERS Safety Report 21170539 (Version 1)
Quarter: 2022Q3

REPORT INFORMATION
  Report Type: Spontaneous
  Country: US (occurrence: US)
  Receive Date: 20220804
  Receipt Date: 20220804
  Transmission Date: 20221026
  Serious: Yes (Other)
  Sender: FDA-Public Use
  Company Number: US-drreddys-LIT/USA/22/0152983

PATIENT
  Age: 73 Year
  Sex: Male

DRUGS (6)
  1. EPHEDRINE SULFATE [Suspect]
     Active Substance: EPHEDRINE SULFATE
     Indication: Arthralgia
  2. DICLOFENAC [Suspect]
     Active Substance: DICLOFENAC
     Indication: Arthralgia
  3. PIROXICAM [Suspect]
     Active Substance: PIROXICAM
     Indication: Arthralgia
  4. INDOMETHACIN [Suspect]
     Active Substance: INDOMETHACIN
     Indication: Arthralgia
  5. ATROPINE [Suspect]
     Active Substance: ATROPINE
     Indication: Arthralgia
  6. PSEUDOEPHEDRINE [Suspect]
     Active Substance: PSEUDOEPHEDRINE
     Indication: Arthralgia

REACTIONS (4)
  - Gastrointestinal haemorrhage [Unknown]
  - Duodenal ulcer [Unknown]
  - Duodenal perforation [Unknown]
  - Product use in unapproved indication [Unknown]
